FAERS Safety Report 9000871 (Version 1)
Quarter: 2012Q4

REPORT INFORMATION
  Report Type: Spontaneous
  Country: DK (occurrence: None)
  Receive Date: 20121226
  Receipt Date: 20121226
  Transmission Date: 20130627
  Serious: Yes (Death, Hospitalization)
  Sender: FDA-Public Use
  Company Number: DR-010376

PATIENT
  Age: 59 Year
  Sex: Male

DRUGS (15)
  1. FIRMAGON [Suspect]
     Route: 058
     Dates: start: 20110513, end: 20110513
  2. FIRMAGON [Suspect]
     Route: 058
  3. MORPHINE [Concomitant]
  4. CONTALGIN [Concomitant]
  5. NOVOMIX [Concomitant]
  6. PREDNISOLON AGEPHA [Concomitant]
  7. METHADONE [Concomitant]
  8. SERENASE /00027401/ [Concomitant]
  9. DUROGESIC [Concomitant]
  10. LYRICA [Concomitant]
  11. INSTANYL [Concomitant]
  12. IMOCLONE [Concomitant]
  13. NOVOMIX [Concomitant]
  14. NORITREN [Concomitant]
  15. SAROTEN [Concomitant]

REACTIONS (4)
  - Confusional state [None]
  - Anger [None]
  - Pyrexia [None]
  - Respiratory failure [None]
